FAERS Safety Report 7194348-8 (Version None)
Quarter: 2010Q4

REPORT INFORMATION
  Report Type: 
  Country: None (occurrence: None)
  Receive Date: 20101223
  Receipt Date: 20101213
  Transmission Date: 20110411
  Serious: Yes (Death, Other)
  Sender: FDA-Public Use
  Company Number: FR-ELI_LILLY_AND_COMPANY-FR201010006999

PATIENT
  Sex: Male

DRUGS (7)
  1. ZYPREXA [Suspect]
     Dosage: 20 MG, DAILY (1/D)
     Route: 048
     Dates: start: 20090601
  2. ZYPREXA [Suspect]
     Dosage: 30 MG, DAILY (1/D)
     Route: 048
     Dates: end: 20100804
  3. ZYPREXA [Suspect]
     Dosage: 20 MG, DAILY (1/D)
     Route: 048
     Dates: start: 20100805
  4. LYSANXIA [Concomitant]
     Dosage: 80 D/F, DAILY (1/D)
     Route: 048
     Dates: start: 20070101
  5. MEPRONIZINE [Concomitant]
     Dosage: 1 D/F, DAILY (1/D)
     Route: 048
     Dates: start: 20070101
  6. THERALENE [Concomitant]
     Dosage: 20 D/F, UNK
     Route: 048
     Dates: start: 20070101
  7. LIPANTHYL [Concomitant]
     Dosage: UNK, UNK
     Route: 048

REACTIONS (5)
  - CARDIOMEGALY [None]
  - DEATH [None]
  - HYPERTRIGLYCERIDAEMIA [None]
  - OVERDOSE [None]
  - WEIGHT INCREASED [None]
